FAERS Safety Report 13293147 (Version 1)
Quarter: 2017Q1

REPORT INFORMATION
  Report Type: Spontaneous
  Country: None (occurrence: US)
  Receive Date: 20170303
  Receipt Date: 20170303
  Transmission Date: 20170428
  Serious: No
  Sender: FDA-Public Use
  Company Number: US-TORRENT-00001337

PATIENT
  Age: 67 Year
  Sex: Male
  Weight: 68 kg

DRUGS (3)
  1. CHOLESTEROL MEDICINES [Concomitant]
  2. TELMISARTAN TABLETS, USP [Suspect]
     Active Substance: TELMISARTAN
  3. MULTIVITAMINS/SUPPLIMENTS [Interacting]
     Active Substance: VITAMINS

REACTIONS (2)
  - Blood pressure increased [Unknown]
  - Drug interaction [Unknown]
